FAERS Safety Report 9546978 (Version 1)
Quarter: 2013Q2

REPORT INFORMATION
  Report Type: Spontaneous
  Country: US (occurrence: None)
  Receive Date: 20130606
  Receipt Date: 20130606
  Transmission Date: 20140414
  Serious: No
  Sender: FDA-Public Use
  Company Number: 163-POMAL-13034531

PATIENT
  Sex: Female

DRUGS (1)
  1. POMALYST [Suspect]
     Indication: PRODUCT USED FOR UNKNOWN INDICATION
     Route: 048

REACTIONS (13)
  - Skin burning sensation [None]
  - Poor quality sleep [None]
  - Pain in extremity [None]
  - Neuropathy peripheral [None]
  - Renal impairment [None]
  - Constipation [None]
  - Headache [None]
  - White blood cell count decreased [None]
  - Haemoglobin decreased [None]
  - Platelet count decreased [None]
  - Dyspnoea exertional [None]
  - Blood calcium decreased [None]
  - Paraesthesia oral [None]
